FAERS Safety Report 10402874 (Version 1)
Quarter: 2014Q3

REPORT INFORMATION
  Report Type: Spontaneous
  Country: US (occurrence: US)
  Receive Date: 20140822
  Receipt Date: 20140822
  Transmission Date: 20150326
  Serious: Yes (Hospitalization, Other)
  Sender: FDA-Public Use
  Company Number: US-ACTAVIS-2014-18221

PATIENT
  Age: 27 Year
  Sex: Female

DRUGS (45)
  1. PHENYTOIN (AMALLC) [Suspect]
     Active Substance: PHENYTOIN
     Indication: STATUS EPILEPTICUS
     Dosage: 750 MG, UNK, LOADING DOSE
     Route: 042
  2. KETAMINE (UNKNOWN) [Suspect]
     Active Substance: KETAMINE
     Indication: OFF LABEL USE
     Dosage: 1.2 MG/KG, Q1H
     Route: 042
  3. METHYLPREDNISOLONE [Concomitant]
     Active Substance: METHYLPREDNISOLONE
     Indication: MENINGITIS VIRAL
  4. TRIMETOPRIM SULFAMETOXAZOL [Concomitant]
     Indication: PNEUMONIA
     Dosage: 15 MG/KG, DAILY
     Route: 042
  5. VALPROIC ACID. [Concomitant]
     Active Substance: VALPROIC ACID
     Indication: STATUS EPILEPTICUS
     Dosage: 15 MG/KG, UNK LOADING DOSE
     Route: 042
  6. IMMUNOGLOBULIN                     /00025201/ [Concomitant]
     Active Substance: HUMAN IMMUNOGLOBULIN G
     Indication: ENCEPHALITIS
     Dosage: UNK
     Route: 042
  7. PHENYTOIN (AMALLC) [Suspect]
     Active Substance: PHENYTOIN
     Dosage: 100 MG, Q6H
     Route: 042
  8. LEVETIRACETAM. [Concomitant]
     Active Substance: LEVETIRACETAM
     Dosage: 300 MG, BID
     Route: 042
  9. AMPICILLIN [Concomitant]
     Active Substance: AMPICILLIN
     Indication: MENINGITIS VIRAL
     Dosage: 2 G, Q8H
     Route: 065
  10. CEFEPIME [Concomitant]
     Active Substance: CEFEPIME\CEFEPIME HYDROCHLORIDE
     Indication: ACINETOBACTER INFECTION
  11. TOPIRAMATE (WATSON LABORATORIES) [Suspect]
     Active Substance: TOPIRAMATE
     Dosage: 300 MG, BID
     Route: 065
  12. LORAZEPAM. [Concomitant]
     Active Substance: LORAZEPAM
     Indication: STATUS EPILEPTICUS
     Dosage: 2 MG, SINGLE
     Route: 042
  13. ACYCLOVIR                          /00587301/ [Concomitant]
     Active Substance: ACYCLOVIR
     Indication: MENINGITIS VIRAL
     Dosage: 500 MG, UNK
     Route: 065
  14. CEFEPIME [Concomitant]
     Active Substance: CEFEPIME\CEFEPIME HYDROCHLORIDE
     Indication: PSEUDOMONAS INFECTION
     Dosage: 2 G, Q8H
     Route: 065
  15. VALPROIC ACID. [Concomitant]
     Active Substance: VALPROIC ACID
     Dosage: 750 MG, TID
     Route: 065
  16. PHENOBARBITAL (UNKNOWN) [Suspect]
     Active Substance: PHENOBARBITAL
     Indication: STATUS EPILEPTICUS
     Dosage: 100 MG, UNK
     Route: 042
  17. PHENOBARBITAL (UNKNOWN) [Suspect]
     Active Substance: PHENOBARBITAL
     Dosage: 60 MG, Q8H
     Route: 042
  18. PENTOBARBITAL [Suspect]
     Active Substance: PENTOBARBITAL
     Indication: STATUS EPILEPTICUS
     Dosage: UNK
     Route: 042
  19. LEVETIRACETAM. [Concomitant]
     Active Substance: LEVETIRACETAM
     Dosage: 2000 MG, BID
     Route: 042
  20. ACYCLOVIR                          /00587301/ [Concomitant]
     Active Substance: ACYCLOVIR
     Dosage: 10 MG/KG, Q8H
     Route: 042
  21. LACOSAMIDE [Concomitant]
     Active Substance: LACOSAMIDE
     Indication: STATUS EPILEPTICUS
     Dosage: 200 MG, BID
     Route: 042
  22. METHYLPREDNISOLONE [Concomitant]
     Active Substance: METHYLPREDNISOLONE
     Indication: ENCEPHALITIS VIRAL
     Dosage: 1 G, DAILY
     Route: 065
  23. TRIMETOPRIM SULFAMETOXAZOL [Concomitant]
     Indication: STENOTROPHOMONAS INFECTION
  24. TOPIRAMATE (WATSON LABORATORIES) [Suspect]
     Active Substance: TOPIRAMATE
     Indication: STATUS EPILEPTICUS
     Dosage: 100 MG, BID
     Route: 065
  25. PENTOBARBITAL [Suspect]
     Active Substance: PENTOBARBITAL
     Dosage: 1 MG/KG, BID
     Route: 042
  26. VANCOMYCIN [Concomitant]
     Active Substance: VANCOMYCIN
     Indication: MENINGITIS VIRAL
     Dosage: 1000 MG, UNK
     Route: 065
  27. CEFTRIAXONE. [Concomitant]
     Active Substance: CEFTRIAXONE
     Indication: MENINGITIS VIRAL
     Dosage: 2 G, UNK
     Route: 065
  28. MIDAZOLAM [Concomitant]
     Active Substance: MIDAZOLAM\MIDAZOLAM HYDROCHLORIDE
     Indication: STATUS EPILEPTICUS
     Dosage: 5 MG, UNK
     Route: 042
  29. PROPOFOL. [Concomitant]
     Active Substance: PROPOFOL
     Indication: STATUS EPILEPTICUS
     Dosage: 50 MCG/KG/MIN
     Route: 042
  30. PHENYTOIN (AMALLC) [Suspect]
     Active Substance: PHENYTOIN
     Dosage: 100 MG, Q8H
     Route: 042
  31. PHENOBARBITAL (UNKNOWN) [Suspect]
     Active Substance: PHENOBARBITAL
     Dosage: 20 MG/KG, UNK LOADING DOSE
     Route: 042
  32. LEVETIRACETAM. [Concomitant]
     Active Substance: LEVETIRACETAM
     Dosage: 1500 MG, BID
     Route: 042
  33. NOREPINEPHRINE [Concomitant]
     Active Substance: NOREPINEPHRINE\NOREPINEPHRINE BITARTRATE
     Indication: HYPOTENSION
     Dosage: LOW DOSE
     Route: 065
  34. N-ACETYLCYSTEINE [Concomitant]
     Active Substance: ACETYLCYSTEINE
     Indication: PRODUCT USED FOR UNKNOWN INDICATION
     Dosage: UNK
     Route: 065
  35. KETAMINE (UNKNOWN) [Suspect]
     Active Substance: KETAMINE
     Indication: STATUS EPILEPTICUS
     Dosage: 1.5 MG/KG, UNK LOADING DOSE
     Route: 042
  36. PENTOBARBITAL [Suspect]
     Active Substance: PENTOBARBITAL
     Dosage: 8 MG/KG, Q1H
     Route: 042
  37. LEVETIRACETAM. [Concomitant]
     Active Substance: LEVETIRACETAM
     Indication: STATUS EPILEPTICUS
     Dosage: 1000 MG, BID
     Route: 042
  38. VANCOMYCIN [Concomitant]
     Active Substance: VANCOMYCIN
     Dosage: UNK
  39. MIDAZOLAM [Concomitant]
     Active Substance: MIDAZOLAM\MIDAZOLAM HYDROCHLORIDE
     Dosage: 100 MG/HOUR
     Route: 042
  40. TOPIRAMATE (WATSON LABORATORIES) [Suspect]
     Active Substance: TOPIRAMATE
     Dosage: 200 MG, BID
     Route: 065
  41. KETAMINE (UNKNOWN) [Suspect]
     Active Substance: KETAMINE
     Dosage: 3.75 MG/KG, Q1H
     Route: 042
  42. LEVETIRACETAM. [Concomitant]
     Active Substance: LEVETIRACETAM
     Dosage: 1000 MG, SINGLE
     Route: 040
  43. PIPERACILLIN/TAZOBACTAM [Concomitant]
     Active Substance: PIPERACILLIN SODIUM\TAZOBACTAM SODIUM
     Indication: PNEUMONIA
     Dosage: UNK
     Route: 042
  44. VASOPRESSIN [Concomitant]
     Active Substance: VASOPRESSIN
     Indication: DIABETES INSIPIDUS
  45. VALPROIC ACID. [Concomitant]
     Active Substance: VALPROIC ACID
     Dosage: 500 MG, BID
     Route: 042

REACTIONS (4)
  - Drug reaction with eosinophilia and systemic symptoms [Recovering/Resolving]
  - Drug-disease interaction [Unknown]
  - Off label use [Recovered/Resolved]
  - Anticonvulsant drug level decreased [Unknown]
